FAERS Safety Report 18329132 (Version 4)
Quarter: 2021Q2

REPORT INFORMATION
  Report Type: Spontaneous
  Country: US (occurrence: US)
  Receive Date: 20200930
  Receipt Date: 20210607
  Transmission Date: 20210717
  Serious: Yes (Hospitalization, Other)
  Sender: FDA-Public Use
  Company Number: US-BIOGEN-2020BI00927756

PATIENT
  Sex: Female

DRUGS (1)
  1. TYSABRI [Suspect]
     Active Substance: NATALIZUMAB
     Indication: MULTIPLE SCLEROSIS
     Route: 042
     Dates: start: 20080911, end: 20200313

REACTIONS (4)
  - Multiple sclerosis relapse [Unknown]
  - Cytomegalovirus infection [Unknown]
  - Opportunistic infection [Unknown]
  - Autoimmune haemolytic anaemia [Unknown]
